FAERS Safety Report 4266824-9 (Version None)
Quarter: 2004Q1

REPORT INFORMATION
  Report Type: 
  Country: None (occurrence: None)
  Receive Date: 20040108
  Receipt Date: 20031010
  Transmission Date: 20041129
  Serious: No
  Sender: FDA-Public Use
  Company Number: US-GLAXOSMITHKLINE-A0429802A

PATIENT
  Sex: Male

DRUGS (9)
  1. EPIVIR [Suspect]
     Indication: HIV INFECTION
     Dosage: 150MG TWICE PER DAY
     Route: 048
  2. KALETRA [Concomitant]
  3. VIREAD [Concomitant]
  4. MARINOL [Concomitant]
  5. QUESTRAN [Concomitant]
  6. AMBIEN [Concomitant]
  7. LORAZEPAM [Concomitant]
  8. FAMVIR [Concomitant]
  9. ACIPHEX [Concomitant]

REACTIONS (4)
  - BLOOD MAGNESIUM [None]
  - DIARRHOEA [None]
  - NEUROPATHY PERIPHERAL [None]
  - PAIN IN EXTREMITY [None]
